FAERS Safety Report 14710690 (Version 1)
Quarter: 2018Q2

REPORT INFORMATION
  Report Type: Spontaneous
  Country: US (occurrence: US)
  Receive Date: 20180403
  Receipt Date: 20180403
  Transmission Date: 20180711
  Serious: No
  Sender: FDA-Public Use
  Company Number: US-ROCHE-1978872

PATIENT
  Sex: Female
  Weight: 43.13 kg

DRUGS (1)
  1. ERIVEDGE [Suspect]
     Active Substance: VISMODEGIB
     Indication: BASAL CELL CARCINOMA
     Dosage: TK 1 C PO QD
     Route: 048
     Dates: start: 20170210

REACTIONS (2)
  - Ageusia [Unknown]
  - Alopecia [Unknown]
